FAERS Safety Report 7243933-3 (Version None)
Quarter: 2011Q1

REPORT INFORMATION
  Report Type: 
  Country: None (occurrence: None)
  Receive Date: 20110125
  Receipt Date: 20110118
  Transmission Date: 20110831
  Serious: Yes (Other)
  Sender: FDA-Public Use
  Company Number: B0695288A

PATIENT
  Age: 8 Year

DRUGS (5)
  1. ANTIPYRETIC [Concomitant]
  2. COLD MEDICATION [Concomitant]
  3. PAIN MEDICATION [Concomitant]
  4. RELENZA [Suspect]
     Indication: INFLUENZA
     Route: 055
     Dates: start: 20110117
  5. ANTITUSSIVE [Concomitant]

REACTIONS (3)
  - HALLUCINATION [None]
  - HYPERHIDROSIS [None]
  - FEAR [None]
